FAERS Safety Report 16283630 (Version 6)
Quarter: 2019Q3

REPORT INFORMATION
  Report Type: Report from Study
  Country: US (occurrence: US)
  Receive Date: 20190507
  Receipt Date: 20190919
  Transmission Date: 20191004
  Serious: Yes (Hospitalization)
  Sender: FDA-Public Use
  Company Number: US-ACTELION-A-US2018-181202

PATIENT
  Age: 50 Year
  Sex: Female
  Weight: 75.74 kg

DRUGS (16)
  1. VELETRI [Suspect]
     Active Substance: EPOPROSTENOL
     Dosage: 20 NG/KG, PER MIN
     Route: 042
  2. ADCIRCA [Concomitant]
     Active Substance: TADALAFIL
  3. MAGNESIUM [Concomitant]
     Active Substance: MAGNESIUM
  4. ELIQUIS [Concomitant]
     Active Substance: APIXABAN
  5. BUTALBITAL AND ACETAMINOPHEN [Concomitant]
     Active Substance: ACETAMINOPHEN\BUTALBITAL
  6. VELETRI [Suspect]
     Active Substance: EPOPROSTENOL
     Indication: PULMONARY ARTERIAL HYPERTENSION
     Dosage: 20 NG/KG, PER MIN
     Route: 042
  7. ZETIA [Concomitant]
     Active Substance: EZETIMIBE
  8. MELATONIN [Concomitant]
     Active Substance: MELATONIN
  9. PROTONIX [Concomitant]
     Active Substance: PANTOPRAZOLE SODIUM
  10. POTASSIUM CHLORIDE. [Concomitant]
     Active Substance: POTASSIUM CHLORIDE
  11. ARMOUR THYROID [Concomitant]
     Active Substance: THYROID, PORCINE
  12. SPIRONOLACTONE. [Concomitant]
     Active Substance: SPIRONOLACTONE
  13. VELETRI [Suspect]
     Active Substance: EPOPROSTENOL
     Dosage: UNK
     Route: 042
  14. OPSUMIT [Suspect]
     Active Substance: MACITENTAN
     Indication: PULMONARY ARTERIAL HYPERTENSION
     Dosage: 10 MG, QD
     Route: 048
     Dates: start: 20161028
  15. ZYRTEC [Concomitant]
     Active Substance: CETIRIZINE HYDROCHLORIDE
  16. LORAZEPAM. [Concomitant]
     Active Substance: LORAZEPAM

REACTIONS (37)
  - Nasopharyngitis [Unknown]
  - Gait disturbance [Unknown]
  - Catheter site erythema [Unknown]
  - Hospitalisation [Recovered/Resolved]
  - Abdominal pain [Not Recovered/Not Resolved]
  - Abdominal pain upper [Unknown]
  - Pulmonary mass [Unknown]
  - Dermatitis contact [Unknown]
  - Catheter site pruritus [Unknown]
  - Weight decreased [Unknown]
  - Heart rate increased [Recovered/Resolved]
  - Decreased appetite [Unknown]
  - Nausea [Not Recovered/Not Resolved]
  - Sensitive skin [Unknown]
  - Ureteral stent insertion [Unknown]
  - Skin disorder [Unknown]
  - Catheter placement [Unknown]
  - Mass [Unknown]
  - Pain [Unknown]
  - Catheter site rash [Unknown]
  - Asthenia [Unknown]
  - Oxygen saturation decreased [Recovered/Resolved]
  - Device leakage [Unknown]
  - Product dose omission [Recovered/Resolved]
  - Myalgia [Unknown]
  - Pain in extremity [Unknown]
  - Diarrhoea [Unknown]
  - Catheter site related reaction [Unknown]
  - Administration site infection [Unknown]
  - Headache [Unknown]
  - Palpitations [Unknown]
  - Chest pain [Not Recovered/Not Resolved]
  - Catheter site infection [Unknown]
  - Pain in jaw [Unknown]
  - Abdominal discomfort [Unknown]
  - Complication associated with device [Recovered/Resolved]
  - Arthralgia [Unknown]

NARRATIVE: CASE EVENT DATE: 201809
